FAERS Safety Report 8348066-0 (Version None)
Quarter: 2012Q2

REPORT INFORMATION
  Report Type: 
  Country: None (occurrence: None)
  Receive Date: 20120507
  Receipt Date: 20120424
  Transmission Date: 20120825
  Serious: Yes (Other)
  Sender: FDA-Public Use
  Company Number: AUR-APL-2012-01160

PATIENT
  Age: 75 Year
  Sex: Male

DRUGS (13)
  1. METFORMIN HCL [Suspect]
     Indication: PRODUCT USED FOR UNKNOWN INDICATION
  2. RAMIPRIL [Suspect]
     Indication: PRODUCT USED FOR UNKNOWN INDICATION
     Dosage: (5 MG, 1 D),
  3. FUROSEMIDE [Suspect]
     Indication: PRODUCT USED FOR UNKNOWN INDICATION
  4. ATORVASTATIN CALCIUM [Suspect]
     Indication: PRODUCT USED FOR UNKNOWN INDICATION
  5. ALBUTEROL SULFATE [Suspect]
     Indication: PRODUCT USED FOR UNKNOWN INDICATION
  6. PREDNISOLONE [Suspect]
     Indication: CHRONIC OBSTRUCTIVE PULMONARY DISEASE
  7. FORMOTEROL FUMARATE [Suspect]
     Indication: PRODUCT USED FOR UNKNOWN INDICATION
  8. SPIRIVA [Concomitant]
  9. VERAPAMIL [Suspect]
     Indication: CHRONIC OBSTRUCTIVE PULMONARY DISEASE
  10. CYSTEINE HYDROCHLORIDE [Suspect]
     Indication: PRODUCT USED FOR UNKNOWN INDICATION
  11. FORMOTEROL FUMARATE [Suspect]
     Indication: PRODUCT USED FOR UNKNOWN INDICATION
     Dosage: RESPIRATORY (INHALATION)
     Route: 055
  12. WARFARIN SODIUM [Suspect]
     Indication: ATRIAL FIBRILLATION
  13. SYMBICORT [Concomitant]

REACTIONS (1)
  - HALLUCINATION [None]
